FAERS Safety Report 8812232 (Version 4)
Quarter: 2013Q4

REPORT INFORMATION
  Report Type: Report from Study
  Country: US (occurrence: US)
  Receive Date: 20120927
  Receipt Date: 20131220
  Transmission Date: 20140711
  Serious: Yes (Other)
  Sender: FDA-Public Use
  Company Number: US-US-EMD SERONO, INC.-7162468

PATIENT
  Age: 60 Year
  Sex: Female

DRUGS (3)
  1. REBIF [Suspect]
     Indication: PRODUCT USED FOR UNKNOWN INDICATION
     Dates: start: 20061006, end: 20110615
  2. REBIF [Suspect]
     Route: 058
     Dates: start: 20120924, end: 201302
  3. REBIF [Suspect]
     Route: 058
     Dates: start: 20130820

REACTIONS (3)
  - Breast cancer [Recovering/Resolving]
  - Influenza like illness [Unknown]
  - Hepatic enzyme increased [Unknown]
